FAERS Safety Report 8428839-6 (Version None)
Quarter: 2012Q2

REPORT INFORMATION
  Report Type: 
  Country: None (occurrence: None)
  Receive Date: 20120612
  Receipt Date: 20120605
  Transmission Date: 20120825
  Serious: No
  Sender: FDA-Public Use
  Company Number: US-BAYER-2011-069644

PATIENT
  Age: 24 Year
  Sex: Female

DRUGS (2)
  1. MIRENA [Suspect]
     Indication: MUSCLE SPASMS
     Dosage: 20 MCG/24HR, CONT
     Route: 015
     Dates: start: 20110504, end: 20110629
  2. MIRENA [Suspect]
     Indication: ENDOMETRIOSIS

REACTIONS (2)
  - PELVIC PAIN [None]
  - ABDOMINAL PAIN [None]
